FAERS Safety Report 7331398-2 (Version None)
Quarter: 2011Q1

REPORT INFORMATION
  Report Type: 
  Country: None (occurrence: None)
  Receive Date: 20110228
  Receipt Date: 20110228
  Transmission Date: 20110831
  Serious: Yes (Life-Threatening, Hospitalization)
  Sender: FDA-Public Use
  Company Number: None

PATIENT
  Age: 55 Year
  Sex: Female
  Weight: 102.0593 kg

DRUGS (1)
  1. ANASTROZOLE [Suspect]
     Indication: ANTIOESTROGEN THERAPY
     Dosage: 1 MG TAB 1 Q DAY MOUTH
     Route: 048
     Dates: start: 20101129, end: 20110118

REACTIONS (3)
  - PRODUCT SUBSTITUTION ISSUE [None]
  - DEPRESSED LEVEL OF CONSCIOUSNESS [None]
  - ADVERSE DRUG REACTION [None]
